FAERS Safety Report 5629883-4 (Version None)
Quarter: 2008Q1

REPORT INFORMATION
  Report Type: 
  Country: None (occurrence: None)
  Receive Date: 20080218
  Receipt Date: 20080208
  Transmission Date: 20080703
  Serious: Yes (Hospitalization)
  Sender: FDA-Public Use
  Company Number: PHFR2007GB03205

PATIENT
  Age: 40 Year
  Sex: Male

DRUGS (1)
  1. CLOZARIL [Suspect]
     Indication: SCHIZOPHRENIA
     Dosage: UNK, UNK
     Route: 048
     Dates: start: 20050217

REACTIONS (11)
  - BLOOD ALKALINE PHOSPHATASE INCREASED [None]
  - CHOLESTASIS [None]
  - HAEMOGLOBIN DECREASED [None]
  - LIVER DISORDER [None]
  - MALAISE [None]
  - MEAN CELL HAEMOGLOBIN CONCENTRATION DECREASED [None]
  - MEAN CELL HAEMOGLOBIN DECREASED [None]
  - NEUTROPHIL COUNT DECREASED [None]
  - PORTAL VEIN THROMBOSIS [None]
  - PROTHROMBIN TIME PROLONGED [None]
  - WHITE BLOOD CELL COUNT DECREASED [None]
